FAERS Safety Report 7516566-9 (Version None)
Quarter: 2011Q2

REPORT INFORMATION
  Report Type: 
  Country: None (occurrence: None)
  Receive Date: 20110601
  Receipt Date: 20110525
  Transmission Date: 20111010
  Serious: Yes (Other)
  Sender: FDA-Public Use
  Company Number: B0723368A

PATIENT
  Sex: Male

DRUGS (1)
  1. PAROXETINE HCL [Suspect]
     Indication: STRESS
     Dates: start: 20090501, end: 20100501

REACTIONS (2)
  - ORAL PAIN [None]
  - PRURITUS [None]
